FAERS Safety Report 9725834 (Version 2)
Quarter: 2014Q1

REPORT INFORMATION
  Report Type: Spontaneous
  Country: US (occurrence: None)
  Receive Date: 20131129
  Receipt Date: 20140318
  Transmission Date: 20141002
  Serious: Yes (Death, Other)
  Sender: FDA-Public Use
  Company Number: 2013-US-003593

PATIENT
  Age: 45 Year
  Sex: Male

DRUGS (8)
  1. XYREM [Suspect]
     Indication: NARCOLEPSY
     Dosage: 2.25 G, BID, ORAL
     Route: 048
     Dates: start: 201208
  2. LOTREL [Concomitant]
  3. ADDERALL (AMFETAMINE ASPARTATE, AMFETAMINE SULFATE, DEXAMFETAMINE SACCHARATE, DEXAMFETAMINE SULFATE) [Concomitant]
  4. COREG [Concomitant]
  5. LOPID (GEMFIBROZIL) [Concomitant]
  6. DOXEPIN [Concomitant]
  7. ELAVIL (AMITRIPTYLINE HYDROCHLORIDE) [Concomitant]
  8. XANAX (ALPRAZOLAM) [Concomitant]

REACTIONS (7)
  - Drug dose omission [None]
  - Somnolence [None]
  - Somnolence [None]
  - Cardiac arrest [None]
  - Completed suicide [None]
  - Suicidal ideation [None]
  - Treatment noncompliance [None]
